FAERS Safety Report 5453429-7 (Version None)
Quarter: 2007Q3

REPORT INFORMATION
  Report Type: 
  Country: None (occurrence: None)
  Receive Date: 20070913
  Receipt Date: 20070830
  Transmission Date: 20080115
  Serious: Yes (Death)
  Sender: FDA-Public Use
  Company Number: 2007S1006720

PATIENT
  Age: 42 Year
  Sex: Male
  Weight: 126.5536 kg

DRUGS (11)
  1. CLOZAPINE [Suspect]
     Indication: SCHIZOAFFECTIVE DISORDER
     Dosage: 300 MG;TWICE A DAY;ORAL; 300 MG;3 TIMES A DAY;ORAL
     Route: 048
     Dates: end: 20070716
  2. CLOZAPINE [Suspect]
     Indication: SCHIZOAFFECTIVE DISORDER
     Dosage: 300 MG;TWICE A DAY;ORAL; 300 MG;3 TIMES A DAY;ORAL
     Route: 048
     Dates: start: 20070601
  3. TOPAMAX [Concomitant]
  4. TRAZODONE HCL [Concomitant]
  5. ATENOLOL [Concomitant]
  6. POTASSIUM CHLORIDE [Concomitant]
  7. FUROSEMIDE [Concomitant]
  8. GLIPIZIDE [Concomitant]
  9. METFORMIN HCL [Concomitant]
  10. GEMFIBROZIL [Concomitant]
  11. ABILIFY [Concomitant]

REACTIONS (1)
  - DRUG EFFECT DECREASED [None]
